FAERS Safety Report 5240509-4 (Version None)
Quarter: 2007Q1

REPORT INFORMATION
  Report Type: 
  Country: None (occurrence: None)
  Receive Date: 20070219
  Receipt Date: 20070208
  Transmission Date: 20070707
  Serious: Yes (Death, Hospitalization)
  Sender: FDA-Public Use
  Company Number: CAL-236

PATIENT
  Age: 57 Year
  Sex: Female

DRUGS (7)
  1. NOGITECAN HYDROCHLORIDE [Suspect]
     Dosage: .75MGM2 PER DAY
     Dates: start: 20041104, end: 20041108
  2. AMRUBICIN HYDROCHLORIDE [Suspect]
     Dosage: 35MGM2 PER DAY
     Route: 042
     Dates: start: 20041106, end: 20041108
  3. LAFUTIDINE [Concomitant]
     Dosage: 20MG PER DAY
     Route: 048
     Dates: end: 20041130
  4. CARBAZOCHROME SODIUM SULFONATE [Concomitant]
     Dosage: 90MG PER DAY
     Route: 048
     Dates: start: 20041111, end: 20041214
  5. MECOBALAMIN [Concomitant]
     Dosage: 1500MCG PER DAY
     Route: 048
     Dates: start: 20041111, end: 20041214
  6. ETIZOLAM [Concomitant]
     Dosage: .5MG PER DAY
     Route: 048
     Dates: start: 20041117, end: 20041214
  7. FILGRASTIM [Concomitant]
     Dosage: 75MCG PER DAY
     Route: 058
     Dates: start: 20041117, end: 20041123

REACTIONS (3)
  - NEUTROPHIL COUNT DECREASED [None]
  - PLATELET COUNT DECREASED [None]
  - WHITE BLOOD CELL COUNT DECREASED [None]
